FAERS Safety Report 5517157-1 (Version None)
Quarter: 2007Q4

REPORT INFORMATION
  Report Type: 
  Country: None (occurrence: None)
  Receive Date: 20071114
  Receipt Date: 20071108
  Transmission Date: 20080405
  Serious: Yes (Other)
  Sender: FDA-Public Use
  Company Number: B0495373A

PATIENT
  Age: 55 Year
  Sex: Female

DRUGS (2)
  1. AUGMENTIN '500' [Suspect]
     Indication: TONSILLITIS
     Dosage: 2G PER DAY
     Route: 048
     Dates: start: 20071017, end: 20071026
  2. VITAMIN [Concomitant]

REACTIONS (2)
  - ANGIOEDEMA [None]
  - ERYTHEMA MULTIFORME [None]
